FAERS Safety Report 8845989 (Version 1)
Quarter: 2012Q4

REPORT INFORMATION
  Report Type: 
  Country: US (occurrence: US)
  Receive Date: 20121017
  Receipt Date: 20121017
  Transmission Date: 20130627
  Serious: No
  Sender: FDA-Public Use
  Company Number: US-009507513-2011SP054868

PATIENT
  Age: 73 Year
  Sex: Female

DRUGS (3)
  1. COMPLEXION ENHANCER SPF15 [Suspect]
     Indication: PRODUCT USED FOR UNKNOWN INDICATION
     Dosage: UNK UNK, Unknown
     Route: 061
     Dates: start: 20111117
  2. COMPLEXION ENHANCER SPF15 [Suspect]
     Indication: MEDICAL OBSERVATION
  3. CORTISONE [Suspect]
     Indication: PRODUCT USED FOR UNKNOWN INDICATION
     Dosage: 2 DF, ONCE
     Dates: start: 20111117

REACTIONS (2)
  - Erythema [Not Recovered/Not Resolved]
  - Nonspecific reaction [Not Recovered/Not Resolved]
